FAERS Safety Report 11896270 (Version 1)
Quarter: 2016Q1

REPORT INFORMATION
  Report Type: Spontaneous
  Country: US (occurrence: US)
  Receive Date: 20160107
  Receipt Date: 20160107
  Transmission Date: 20160526
  Serious: No
  Sender: FDA-Public Use
  Company Number: US-ROCHE-1512753

PATIENT

DRUGS (1)
  1. RITUXAN [Suspect]
     Active Substance: RITUXIMAB
     Indication: IMMUNE THROMBOCYTOPENIC PURPURA
     Dosage: 4 WEEKS ON, 2 WEEKS OFF; 6 CYCLES RECEIVED
     Route: 065
     Dates: start: 201411

REACTIONS (2)
  - Off label use [Unknown]
  - No therapeutic response [Unknown]
